FAERS Safety Report 23249980 (Version 1)
Quarter: 2023Q4

REPORT INFORMATION
  Report Type: Spontaneous
  Country: CA (occurrence: None)
  Receive Date: 20231201
  Receipt Date: 20231201
  Transmission Date: 20240109
  Serious: Yes (Other)
  Sender: FDA-Public Use
  Company Number: CA-ROCHE-3463828

PATIENT
  Age: 67 Year
  Sex: Male

DRUGS (12)
  1. CELLCEPT [Suspect]
     Active Substance: MYCOPHENOLATE MOFETIL
     Indication: Product used for unknown indication
     Route: 065
     Dates: start: 201904, end: 202311
  2. METHOTREXATE [Concomitant]
     Active Substance: METHOTREXATE
     Indication: Product used for unknown indication
     Route: 065
     Dates: start: 2011
  3. METHOTREXATE [Concomitant]
     Active Substance: METHOTREXATE
     Route: 065
     Dates: start: 2016, end: 201809
  4. AZATHIOPRINE [Concomitant]
     Active Substance: AZATHIOPRINE
     Dates: start: 2011
  5. PREDNISONE [Concomitant]
     Active Substance: PREDNISONE
     Indication: Retroperitoneal fibrosis
     Route: 048
     Dates: start: 2011
  6. PREDNISONE [Concomitant]
     Active Substance: PREDNISONE
     Dosage: DOSAGE: 1000 14 DAYS APART
     Dates: start: 20231103
  7. DEXILANT [Concomitant]
     Active Substance: DEXLANSOPRAZOLE
  8. ATORVASTATIN [Concomitant]
     Active Substance: ATORVASTATIN
  9. AMLODIPINE [Concomitant]
     Active Substance: AMLODIPINE BESYLATE
  10. APIXABAN [Concomitant]
     Active Substance: APIXABAN
  11. PANTOPRAZOLE [Concomitant]
     Active Substance: PANTOPRAZOLE
  12. ACETAMINOPHEN [Concomitant]
     Active Substance: ACETAMINOPHEN

REACTIONS (1)
  - Hydronephrosis [Unknown]
